FAERS Safety Report 14895416 (Version 1)
Quarter: 2018Q2

REPORT INFORMATION
  Report Type: Spontaneous
  Country: FR (occurrence: FR)
  Receive Date: 20180515
  Receipt Date: 20180515
  Transmission Date: 20180711
  Serious: Yes (Other)
  Sender: FDA-Public Use
  Company Number: FR-MERCK KGAA-2047746

PATIENT
  Age: 40 Year
  Sex: Female

DRUGS (1)
  1. NOVOTHYROX [Suspect]
     Active Substance: LEVOTHYROXINE SODIUM
     Indication: PRODUCT USED FOR UNKNOWN INDICATION

REACTIONS (43)
  - Social avoidant behaviour [None]
  - Epicondylitis [None]
  - Ear pain [None]
  - White blood cell count increased [None]
  - Malaise [None]
  - Lymphocyte count increased [None]
  - Anxiety [None]
  - Weight increased [None]
  - Mental fatigue [None]
  - Blood pressure decreased [None]
  - Affect lability [None]
  - Blood cholesterol increased [None]
  - Dyspareunia [None]
  - Emotional disorder [None]
  - Persistent depressive disorder [None]
  - Red blood cell sedimentation rate increased [None]
  - Mood swings [None]
  - Sleep disorder [None]
  - Tremor [None]
  - Haemorrhagic disorder [None]
  - Fatigue [None]
  - Libido decreased [None]
  - Blood triglycerides increased [None]
  - Depression [None]
  - Odynophagia [None]
  - Mean cell volume decreased [None]
  - Neutrophil count increased [None]
  - Vomiting [None]
  - Amnesia [None]
  - Dyspnoea [None]
  - Irritability [None]
  - Diarrhoea [None]
  - Dry skin [None]
  - Anhedonia [None]
  - Monocyte count increased [None]
  - Back pain [None]
  - Psychiatric symptom [None]
  - Self esteem decreased [None]
  - Blood thyroid stimulating hormone increased [None]
  - Cough [None]
  - Creatinine renal clearance decreased [None]
  - Alopecia [None]
  - Headache [None]

NARRATIVE: CASE EVENT DATE: 201703
